FAERS Safety Report 7933914-6 (Version None)
Quarter: 2011Q4

REPORT INFORMATION
  Report Type: 
  Country: None (occurrence: None)
  Receive Date: 20111122
  Receipt Date: 20111114
  Transmission Date: 20120403
  Serious: Yes (Other)
  Sender: FDA-Public Use
  Company Number: PHHY2011CH100294

PATIENT
  Age: 47 Year
  Sex: Male

DRUGS (2)
  1. ALCOHOL [Concomitant]
     Dosage: UNK UKN, UNK
  2. METHYLPHENIDATE [Suspect]
     Dosage: 100 MG, UNK
     Route: 048

REACTIONS (3)
  - ALCOHOL ABUSE [None]
  - AGITATION [None]
  - DRUG ABUSE [None]
